APPROVED DRUG PRODUCT: DOXERCALCIFEROL
Active Ingredient: DOXERCALCIFEROL
Strength: 4MCG/2ML (2MCG/ML)
Dosage Form/Route: INJECTABLE;INJECTION
Application: A213717 | Product #002 | TE Code: AP
Applicant: EUGIA PHARMA SPECIALITIES LTD
Approved: Jan 24, 2022 | RLD: No | RS: No | Type: RX